FAERS Safety Report 13472666 (Version 2)
Quarter: 2017Q4

REPORT INFORMATION
  Report Type: Spontaneous
  Country: GB (occurrence: DK)
  Receive Date: 20170424
  Receipt Date: 20171114
  Transmission Date: 20180320
  Serious: Yes (Hospitalization, Other)
  Sender: FDA-Public Use
  Company Number: GB-PFIZER INC-2017172093

PATIENT
  Age: 28 Year
  Sex: Female

DRUGS (1)
  1. LYRICA [Suspect]
     Active Substance: PREGABALIN
     Dosage: UNK

REACTIONS (5)
  - Paranoia [Unknown]
  - Overdose [Unknown]
  - Anxiety [Unknown]
  - Psychotic disorder [Unknown]
  - Condition aggravated [Unknown]
